FAERS Safety Report 23593706 (Version 2)
Quarter: 2024Q1

REPORT INFORMATION
  Report Type: Report from Study
  Country: US (occurrence: US)
  Receive Date: 20240304
  Receipt Date: 20240322
  Transmission Date: 20240410
  Serious: Yes (Hospitalization, Other)
  Sender: FDA-Public Use
  Company Number: US-ABBVIE-5661952

PATIENT
  Age: 59 Year
  Sex: Female
  Weight: 81.646 kg

DRUGS (1)
  1. HUMIRA [Suspect]
     Active Substance: ADALIMUMAB
     Indication: Rheumatoid arthritis
     Dosage: FORM STRENGTH: 40MG
     Route: 058
     Dates: end: 202312

REACTIONS (6)
  - Acoustic neuroma [Recovering/Resolving]
  - Deafness unilateral [Not Recovered/Not Resolved]
  - Balance disorder [Not Recovered/Not Resolved]
  - Facial paralysis [Not Recovered/Not Resolved]
  - Craniotomy [Not Recovered/Not Resolved]
  - Post procedural complication [Not Recovered/Not Resolved]

NARRATIVE: CASE EVENT DATE: 20201121
